FAERS Safety Report 14165843 (Version 6)
Quarter: 2024Q2

REPORT INFORMATION
  Report Type: Spontaneous
  Country: DE (occurrence: DE)
  Receive Date: 20171107
  Receipt Date: 20240419
  Transmission Date: 20240715
  Serious: Yes (Life-Threatening, Hospitalization, Other)
  Sender: FDA-Public Use
  Company Number: DE-DCGMA-17175254

PATIENT
  Age: 66 Year
  Sex: Male
  Weight: 70 kg

DRUGS (13)
  1. RISPERIDONE [Suspect]
     Active Substance: RISPERIDONE
     Indication: Personality change
     Dosage: DOSAGE FORM: UNSPECIFIED??END DATE: 2017
     Route: 048
     Dates: start: 201708, end: 2017
  2. TAMSULOSIN [Concomitant]
     Active Substance: TAMSULOSIN
     Indication: Product used for unknown indication
     Dosage: DOSAGE FORM: UNSPECIFIED, 0.4 MG
     Route: 048
  3. FILGRASTIM [Concomitant]
     Active Substance: FILGRASTIM
     Indication: Product used for unknown indication
     Dosage: DOSAGE FORM: UNSPECIFIED
     Route: 065
  4. LAMOTRIGINE [Interacting]
     Active Substance: LAMOTRIGINE
     Indication: Epilepsy
     Dosage: DOSAGE TEXT: 250 MG MILLIGRAM(S) EVERY DAY
     Route: 048
     Dates: start: 2017
  5. LAMOTRIGINE [Interacting]
     Active Substance: LAMOTRIGINE
     Indication: Epilepsy
     Dosage: DOSAGE FORM: UNSPECIFIED
     Route: 048
  6. LEVETIRACETAM [Concomitant]
     Active Substance: LEVETIRACETAM
     Indication: Epilepsy
     Dosage: DOSAGE FORM: UNSPECIFIED
     Route: 048
     Dates: end: 2017
  7. VALPROIC ACID [Interacting]
     Active Substance: VALPROIC ACID
     Indication: Epilepsy
     Dosage: DOSAGE FORM: UNSPECIFIED
     Route: 048
     Dates: end: 2017
  8. TORSEMIDE [Concomitant]
     Active Substance: TORSEMIDE
     Indication: Product used for unknown indication
     Dosage: DOSAGE FORM: UNSPECIFIED
     Route: 048
  9. LEVOTHYROXINE SODIUM [Concomitant]
     Active Substance: LEVOTHYROXINE SODIUM
     Indication: Product used for unknown indication
     Dosage: DOSAGE FORM: UNSPECIFIED
     Route: 048
  10. PANTOPRAZOLE SODIUM [Concomitant]
     Active Substance: PANTOPRAZOLE SODIUM
     Indication: Epilepsy
     Dosage: DOSAGE FORM: UNSPECIFIED
     Route: 048
  11. MELPERONE [Interacting]
     Active Substance: MELPERONE
     Indication: Product used for unknown indication
     Dosage: TIME INTERVAL: AS NECESSARY: DOSAGE FORM: UNSPECIFIED
     Route: 065
  12. MELPERONE [Interacting]
     Active Substance: MELPERONE
     Indication: Product used for unknown indication
     Dosage: DOSAGE FORM: UNSPECIFIED
     Route: 065
  13. AZACITIDINE [Concomitant]
     Active Substance: AZACITIDINE
     Indication: Myelodysplastic syndrome
     Dosage: DOSAGE FORM: UNSPECIFIED
     Route: 042
     Dates: end: 20170829

REACTIONS (6)
  - Epilepsy [Recovering/Resolving]
  - Endotracheal intubation [Recovering/Resolving]
  - Drug interaction [Recovering/Resolving]
  - Coma [Recovered/Resolved]
  - Blood glucose increased [Unknown]
  - Endotracheal intubation [Recovering/Resolving]

NARRATIVE: CASE EVENT DATE: 20170913
